FAERS Safety Report 21045281 (Version 2)
Quarter: 2022Q4

REPORT INFORMATION
  Report Type: Spontaneous
  Country: US (occurrence: US)
  Receive Date: 20220706
  Receipt Date: 20221216
  Transmission Date: 20230112
  Serious: Yes (Other)
  Sender: FDA-Public Use
  Company Number: US-UROGEN PHARMA LTD.-2022-UGN-000050

PATIENT

DRUGS (6)
  1. JELMYTO [Suspect]
     Active Substance: MITOMYCIN
     Indication: Transitional cell cancer of the renal pelvis and ureter
     Dosage: 8 MILLILITER (INSTILLATION)
     Dates: start: 20220414, end: 20220414
  2. JELMYTO [Suspect]
     Active Substance: MITOMYCIN
     Dosage: 8 MILLILITER (INSTILLATION)
     Dates: start: 20220421, end: 20220421
  3. JELMYTO [Suspect]
     Active Substance: MITOMYCIN
     Dosage: 8 MILLILITER (INSTILLATION)
     Dates: start: 20220428, end: 20220428
  4. JELMYTO [Suspect]
     Active Substance: MITOMYCIN
     Dosage: 8 MILLILITER (INSTILLATION)
     Dates: start: 20220505, end: 20220505
  5. JELMYTO [Suspect]
     Active Substance: MITOMYCIN
     Dosage: UNK (INSTILLATION)
     Dates: start: 20220520, end: 20220520
  6. JELMYTO [Suspect]
     Active Substance: MITOMYCIN
     Dosage: UNK (INSTILLATION)
     Dates: start: 20220527, end: 20220527

REACTIONS (4)
  - Ureteric stenosis [Unknown]
  - Abdominal pain [Recovered/Resolved]
  - Fatigue [Recovered/Resolved]
  - Pyrexia [Recovered/Resolved]

NARRATIVE: CASE EVENT DATE: 20220507
